FAERS Safety Report 9575321 (Version 2)
Quarter: 2013Q4

REPORT INFORMATION
  Report Type: Spontaneous
  Country: US (occurrence: US)
  Receive Date: 20131001
  Receipt Date: 20131003
  Transmission Date: 20140711
  Serious: Yes (Hospitalization)
  Sender: FDA-Public Use
  Company Number: US-B.I. PHARMACEUTICALS,INC./RIDGEFIELD-2013-BI-30005BP

PATIENT
  Age: 66 Year
  Sex: Male
  Weight: 91 kg

DRUGS (16)
  1. SPIRIVA [Suspect]
     Indication: CHRONIC OBSTRUCTIVE PULMONARY DISEASE
     Dosage: 18 MCG
     Route: 055
     Dates: start: 2011
  2. AMARYL [Concomitant]
     Dosage: 2 MG
     Route: 048
  3. BUPROPION [Concomitant]
     Dosage: 150 BUPROTION
     Route: 048
  4. CELEBREX [Concomitant]
     Dosage: 200 MG
     Route: 048
  5. CITALOPRAM [Concomitant]
     Dosage: 20 MG
     Route: 048
  6. FUROSIMIDE [Concomitant]
     Dosage: 40 MG
     Route: 048
  7. HYDROCODONE [Concomitant]
     Dosage: STRENGTH: 10/325 MG
     Route: 048
  8. LISINOPRIL [Concomitant]
     Dosage: 20 MG
     Route: 048
  9. MORPHINE ER [Concomitant]
     Dosage: 30 MG
     Route: 048
  10. NEXIUM [Concomitant]
     Dosage: 40 MG
     Route: 048
  11. NYSTATIN [Concomitant]
     Route: 048
  12. PENICILLIN [Concomitant]
     Dosage: 2000 MG
     Route: 048
  13. PREDNISONE [Concomitant]
     Dosage: 10 MG
     Route: 048
  14. SIMVASTAIN [Concomitant]
     Dosage: 20 MG
     Route: 048
  15. SYMBICORT [Concomitant]
     Dosage: STRENGTH: 160/4.5 1 PUFF
  16. TEMAZEPAM [Concomitant]
     Dosage: 15 MG
     Route: 048

REACTIONS (2)
  - Dyspnoea [Not Recovered/Not Resolved]
  - Pneumonia [Not Recovered/Not Resolved]
